FAERS Safety Report 4665515-X (Version None)
Quarter: 2005Q2

REPORT INFORMATION
  Report Type: 
  Country: None (occurrence: None)
  Receive Date: 20050517
  Receipt Date: 20050511
  Transmission Date: 20051028
  Serious: No
  Sender: FDA-Public Use
  Company Number: TAP2005Q00640

PATIENT
  Age: 74 Year
  Sex: Female

DRUGS (2)
  1. PREVACID [Suspect]
     Indication: GASTROOESOPHAGEAL REFLUX DISEASE
     Dosage: 30 MG, 1 IN 1 D, PER ORAL
     Route: 048
     Dates: start: 20040401
  2. PROZAC [Concomitant]

REACTIONS (3)
  - B-CELL LYMPHOMA [None]
  - CHEST PAIN [None]
  - DRUG INEFFECTIVE [None]
